FAERS Safety Report 6928012-4 (Version None)
Quarter: 2010Q3

REPORT INFORMATION
  Report Type: 
  Country: None (occurrence: None)
  Receive Date: 20100817
  Receipt Date: 20100812
  Transmission Date: 20110219
  Serious: Yes (Other)
  Sender: FDA-Public Use
  Company Number: US-BRISTOL-MYERS SQUIBB COMPANY-15237407

PATIENT
  Age: 87 Year
  Sex: Female

DRUGS (10)
  1. TRAZODONE HCL [Suspect]
     Dosage: STARTED 2 MONTHS AGO
     Dates: start: 20100101
  2. LOTREL [Concomitant]
     Dosage: 1 DF=10/20MG
  3. SYNTHROID [Concomitant]
  4. ASPIRIN [Concomitant]
  5. TRICOR [Concomitant]
  6. PREMARIN [Concomitant]
  7. POTASSIUM [Concomitant]
  8. CENTRUM SILVER [Concomitant]
     Dosage: 1 DF=1 TAB
  9. HYDROCHLOROTHIAZIDE [Concomitant]
  10. ARICEPT [Concomitant]

REACTIONS (3)
  - AGITATION [None]
  - DEPRESSION [None]
  - NERVOUSNESS [None]
